FAERS Safety Report 11857648 (Version 1)
Quarter: 2015Q4

REPORT INFORMATION
  Report Type: Spontaneous
  Country: US (occurrence: None)
  Receive Date: 20151221
  Receipt Date: 20151221
  Transmission Date: 20160305
  Serious: No
  Sender: FDA-Public Use
  Company Number: None

PATIENT
  Age: 57 Year
  Sex: Female
  Weight: 66.68 kg

DRUGS (4)
  1. DOXEPIN [Concomitant]
     Active Substance: DOXEPIN
  2. VALIUM [Concomitant]
     Active Substance: DIAZEPAM
  3. BRINTELLIX [Suspect]
     Active Substance: VORTIOXETINE HYDROBROMIDE
     Indication: DEPRESSION
     Dosage: 9 DAYS OR LESS?1 PILL, ONCE DAILY, TAKEN BY MOUTH
     Route: 048
  4. SIMVASTATIN. [Concomitant]
     Active Substance: SIMVASTATIN

REACTIONS (2)
  - Dysgeusia [None]
  - Dry mouth [None]

NARRATIVE: CASE EVENT DATE: 20151220
